FAERS Safety Report 7544048-7 (Version None)
Quarter: 2011Q2

REPORT INFORMATION
  Report Type: 
  Country: None (occurrence: None)
  Receive Date: 20110613
  Receipt Date: 20050725
  Transmission Date: 20111010
  Serious: Yes (Death, Hospitalization, Other)
  Sender: FDA-Public Use
  Company Number: PHFR2004GB01862

PATIENT
  Sex: Male

DRUGS (2)
  1. CLOZAPINE [Suspect]
     Indication: SCHIZOPHRENIA
     Dosage: 750 MG/DAY
     Route: 048
     Dates: start: 19910816
  2. DEXAMETHASONE [Concomitant]

REACTIONS (5)
  - LUNG NEOPLASM MALIGNANT [None]
  - PLATELET COUNT INCREASED [None]
  - PLEURAL EFFUSION [None]
  - HAEMOGLOBIN DECREASED [None]
  - ANAEMIA [None]
